FAERS Safety Report 5009845-0 (Version None)
Quarter: 2006Q2

REPORT INFORMATION
  Report Type: 
  Country: None (occurrence: None)
  Receive Date: 20060522
  Receipt Date: 20060424
  Transmission Date: 20061013
  Serious: Yes (Hospitalization)
  Sender: FDA-Public Use
  Company Number: 2006-00824

PATIENT
  Age: 56 Year
  Sex: Female
  Weight: 69 kg

DRUGS (5)
  1. VELCADE [Suspect]
     Indication: MULTIPLE MYELOMA
     Dosage: INTRAVENOUS
     Route: 042
     Dates: start: 20051229
  2. ZOLEDRONATE (ZOLEDRONIC ACID) [Concomitant]
  3. EPREX [Concomitant]
  4. NEUPOGEN [Concomitant]
  5. DEXAMETHASONE TAB [Concomitant]

REACTIONS (2)
  - SEPTIC SHOCK [None]
  - UROSEPSIS [None]
